FAERS Safety Report 24938318 (Version 1)
Quarter: 2025Q1

REPORT INFORMATION
  Report Type: Spontaneous
  Country: DE (occurrence: DE)
  Receive Date: 20250206
  Receipt Date: 20250206
  Transmission Date: 20250409
  Serious: Yes (Other)
  Sender: IMMUNOCORE
  Company Number: DE-IMMUNOCORE, LTD-2025-IMC-003610

PATIENT

DRUGS (7)
  1. TEBENTAFUSP [Suspect]
     Active Substance: TEBENTAFUSP
     Indication: Myositis
     Dates: start: 202108
  2. TEBENTAFUSP [Suspect]
     Active Substance: TEBENTAFUSP
     Dates: start: 202202
  3. MITOMYCIN [Suspect]
     Active Substance: MITOMYCIN
     Indication: Product used for unknown indication
  4. NIVOLUMAB [Suspect]
     Active Substance: NIVOLUMAB
     Indication: Metastases to liver
     Dates: start: 202103
  5. YERVOY [Suspect]
     Active Substance: IPILIMUMAB
     Indication: Metastases to liver
  6. ETHIODIZED OIL [Concomitant]
     Active Substance: ETHIODIZED OIL
     Indication: Product used for unknown indication
  7. SPHEREX [Concomitant]
     Indication: Product used for unknown indication

REACTIONS (4)
  - Metastases to skin [Unknown]
  - Myositis [Unknown]
  - Malignant neoplasm progression [Unknown]
  - Off label use [Unknown]
